FAERS Safety Report 18133103 (Version 1)
Quarter: 2020Q3

REPORT INFORMATION
  Report Type: Other
  Country: DE (occurrence: DE)
  Receive Date: 20200811
  Receipt Date: 20200811
  Transmission Date: 20201103
  Serious: Yes (Other)
  Sender: FDA-Public Use
  Company Number: DE-ASPEN-GLO2020DE007659

PATIENT
  Sex: Female

DRUGS (1)
  1. DESOGESTREL, ETHINYLESTRADIOL [Suspect]
     Active Substance: DESOGESTREL
     Indication: CONTRACEPTION
     Route: 065

REACTIONS (5)
  - Lung infiltration [Recovering/Resolving]
  - Chest pain [Recovering/Resolving]
  - Pulmonary artery occlusion [Recovered/Resolved with Sequelae]
  - Pneumonitis [Unknown]
  - Dyspnoea [Recovering/Resolving]

NARRATIVE: CASE EVENT DATE: 2015
